FAERS Safety Report 4291695-4 (Version None)
Quarter: 2004Q1

REPORT INFORMATION
  Report Type: 
  Country: None (occurrence: None)
  Receive Date: 20040211
  Receipt Date: 20020823
  Transmission Date: 20041129
  Serious: No
  Sender: FDA-Public Use
  Company Number: US-GLAXOSMITHKLINE-A0379047A

PATIENT
  Age: 50 Year
  Sex: Female

DRUGS (4)
  1. IMITREX [Suspect]
     Indication: MIGRAINE
     Dosage: 1INJ AS REQUIRED
     Route: 058
  2. ZOLOFT [Concomitant]
     Route: 065
  3. NORVASC [Concomitant]
     Route: 065
  4. ALLEGRA [Concomitant]

REACTIONS (3)
  - DRUG INEFFECTIVE [None]
  - FLUSHING [None]
  - PHARMACEUTICAL PRODUCT COMPLAINT [None]
